FAERS Safety Report 8351398 (Version 2)
Quarter: 2013Q4

REPORT INFORMATION
  Report Type: Spontaneous
  Country: US (occurrence: US)
  Receive Date: 20120124
  Receipt Date: 20131204
  Transmission Date: 20140711
  Serious: Yes (Other)
  Sender: FDA-Public Use
  Company Number: US-BAYER-2012-006439

PATIENT
  Age: 38 Year
  Sex: Female
  Weight: 94.33 kg

DRUGS (4)
  1. YAZ [Suspect]
     Dosage: UNK
     Dates: start: 20071031, end: 201006
  2. PAROXETINE [Concomitant]
     Dosage: 40 MG, UNK
     Route: 048
  3. PAROXETINE [Concomitant]
     Dosage: 10 MG, UNK
     Route: 048
  4. ZANTAC [Concomitant]
     Indication: GASTROOESOPHAGEAL REFLUX DISEASE
     Dosage: UNK
     Route: 048
     Dates: start: 20091110

REACTIONS (3)
  - Cholecystectomy [None]
  - Injury [None]
  - Cholecystitis chronic [None]
